FAERS Safety Report 18300259 (Version 1)
Quarter: 2020Q3

REPORT INFORMATION
  Report Type: Spontaneous
  Country: US (occurrence: US)
  Receive Date: 20200922
  Receipt Date: 20200922
  Transmission Date: 20201103
  Serious: Yes (Hospitalization)
  Sender: FDA-Public Use
  Company Number: None

PATIENT
  Age: 76 Year
  Sex: Female
  Weight: 86.5 kg

DRUGS (17)
  1. DOCUSETESENNA [Concomitant]
  2. LEVOTHYROXINE. [Concomitant]
     Active Substance: LEVOTHYROXINE
  3. ASPIRIN. [Concomitant]
     Active Substance: ASPIRIN
  4. FUROSEMIDE. [Concomitant]
     Active Substance: FUROSEMIDE
  5. AMLODIPINE [Concomitant]
     Active Substance: AMLODIPINE BESYLATE
  6. CHEWABLE MULTIVITAMIN WITH IRON [Concomitant]
  7. ATORVASTATIN [Concomitant]
     Active Substance: ATORVASTATIN
  8. VANCOMYCLN 5GM VIAL [Suspect]
     Active Substance: VANCOMYCIN
     Indication: STAPHYLOCOCCAL INFECTION
     Dosage: ?          OTHER ROUTE:IV?
     Route: 042
     Dates: start: 20200825, end: 20200909
  9. CARVEDILOL. [Concomitant]
     Active Substance: CARVEDILOL
  10. VANCOMYCLN 5GM VIAL [Suspect]
     Active Substance: VANCOMYCIN
     Indication: ENTEROCOCCAL BACTERAEMIA
     Dosage: ?          OTHER ROUTE:IV?
     Route: 042
     Dates: start: 20200825, end: 20200909
  11. HYDROCODONE? ACETAMINOPHEN [Concomitant]
  12. MYRBELRIQ [Concomitant]
  13. GABAPENTIN. [Concomitant]
     Active Substance: GABAPENTIN
  14. ISOSORBIDE MONONITRATE. [Concomitant]
     Active Substance: ISOSORBIDE MONONITRATE
  15. LISINOPRIL. [Concomitant]
     Active Substance: LISINOPRIL
  16. POTASSIUM CHLORIDE. [Concomitant]
     Active Substance: POTASSIUM CHLORIDE
  17. SERTRALINE [Concomitant]
     Active Substance: SERTRALINE HYDROCHLORIDE

REACTIONS (4)
  - Blood potassium increased [None]
  - Acute kidney injury [None]
  - Mental status changes [None]
  - Blood urea increased [None]

NARRATIVE: CASE EVENT DATE: 20200909
